FAERS Safety Report 4606134-0 (Version None)
Quarter: 2005Q1

REPORT INFORMATION
  Report Type: 
  Country: None (occurrence: None)
  Receive Date: 20050303
  Receipt Date: 20041206
  Transmission Date: 20050727
  Serious: No
  Sender: FDA-Public Use
  Company Number: 200421133BWH

PATIENT
  Age: 67 Year
  Sex: Male
  Weight: 79.3795 kg

DRUGS (12)
  1. LEVITRA [Suspect]
     Indication: ERECTILE DYSFUNCTION
     Dosage: 10 MG, OW, ORAL
     Route: 048
     Dates: start: 20041003
  2. PREDNISONE [Concomitant]
  3. NEORAL [Concomitant]
  4. CELLCEPT [Concomitant]
  5. TOPROL-XL [Concomitant]
  6. ASPIRIN [Concomitant]
  7. FOSAMAX [Concomitant]
  8. ENAPRIL [Concomitant]
  9. LIPITOR [Concomitant]
  10. FOLIC ACID [Concomitant]
  11. AMBIEN [Concomitant]
  12. M.V.I. [Concomitant]

REACTIONS (2)
  - HEADACHE [None]
  - NASAL CONGESTION [None]
